FAERS Safety Report 4979898-4 (Version None)
Quarter: 2006Q2

REPORT INFORMATION
  Report Type: 
  Country: None (occurrence: None)
  Receive Date: 20060421
  Receipt Date: 20050718
  Transmission Date: 20061013
  Serious: Yes (Hospitalization, Disabling)
  Sender: FDA-Public Use
  Company Number: US-MERCK-0507USA02342

PATIENT
  Age: 58 Year
  Sex: Male
  Weight: 108 kg

DRUGS (4)
  1. VIOXX [Suspect]
     Indication: ARTHRITIS
     Route: 048
     Dates: start: 20000815, end: 20021028
  2. PRILOSEC [Concomitant]
     Route: 065
  3. ASPIRIN [Concomitant]
     Route: 065
  4. CENTRUM SILVER [Concomitant]
     Route: 065

REACTIONS (6)
  - ANGINA PECTORIS [None]
  - ANXIETY [None]
  - ASTHMA [None]
  - CORONARY ARTERY DISEASE [None]
  - HYPERTENSION [None]
  - MYOCARDIAL INFARCTION [None]
